FAERS Safety Report 26175797 (Version 1)
Quarter: 2025Q4

REPORT INFORMATION
  Report Type: Spontaneous
  Country: JP (occurrence: JP)
  Receive Date: 20251218
  Receipt Date: 20251218
  Transmission Date: 20260118
  Serious: Yes (Life-Threatening, Hospitalization, Other)
  Sender: AMGEN
  Company Number: JP-AMGEN-JPNSP2025105662

PATIENT
  Age: 55 Year
  Sex: Female
  Weight: 45 kg

DRUGS (6)
  1. IMDELLTRA [Suspect]
     Active Substance: TARLATAMAB-DLLE
     Indication: Small cell lung cancer extensive stage
     Dosage: 1 MILLIGRAM (1ST DOSE), ONE DOSE OVER ONE HOUR, DRIP INFUSION
     Route: 040
     Dates: start: 20250527, end: 20250527
  2. DENOSUMAB [Concomitant]
     Active Substance: DENOSUMAB
     Indication: Product used for unknown indication
     Dosage: 120 MILLIGRAM, Q4WK
     Route: 065
     Dates: start: 20250120
  3. MS CONTIN [Concomitant]
     Active Substance: MORPHINE SULFATE
     Indication: Metastases to bone
     Dosage: 20 MILLIGRAM, Q12H
     Dates: start: 20241128
  4. CELECOXIB [Concomitant]
     Active Substance: CELECOXIB
     Dosage: 100 MILLIGRAM, BID
     Dates: start: 20250415
  5. DEXAMETHASONE SODIUM PHOSPHATE [Concomitant]
     Active Substance: DEXAMETHASONE SODIUM PHOSPHATE
     Indication: Prophylaxis
     Dosage: 6.6 MILLIGRAM, QD
     Dates: start: 20250527, end: 20250527
  6. DEXAMETHASONE SODIUM PHOSPHATE [Concomitant]
     Active Substance: DEXAMETHASONE SODIUM PHOSPHATE
     Indication: Cytokine release syndrome

REACTIONS (4)
  - Cytokine release syndrome [Unknown]
  - Liver injury [Recovering/Resolving]
  - Metastases to central nervous system [Unknown]
  - Platelet count decreased [Not Recovered/Not Resolved]

NARRATIVE: CASE EVENT DATE: 20250527
